FAERS Safety Report 5266127-X (Version None)
Quarter: 2007Q1

REPORT INFORMATION
  Report Type: 
  Country: None (occurrence: None)
  Receive Date: 20070315
  Receipt Date: 20070228
  Transmission Date: 20070707
  Serious: Yes (Hospitalization)
  Sender: FDA-Public Use
  Company Number: US-AMGEN-US213096

PATIENT
  Sex: Female

DRUGS (1)
  1. ENBREL [Suspect]
     Indication: RHEUMATOID ARTHRITIS
     Route: 058
     Dates: start: 20060801

REACTIONS (5)
  - HERNIA [None]
  - HERPES SIMPLEX [None]
  - HYSTERECTOMY [None]
  - VAGINAL OPERATION [None]
  - VIRAL PHARYNGITIS [None]
